FAERS Safety Report 6048135-4 (Version None)
Quarter: 2009Q1

REPORT INFORMATION
  Report Type: 
  Country: None (occurrence: None)
  Receive Date: 20090123
  Receipt Date: 20090119
  Transmission Date: 20090719
  Serious: Yes (Other)
  Sender: FDA-Public Use
  Company Number: US-BAYER-200814198BCC

PATIENT
  Age: 52 Year
  Sex: Male
  Weight: 73 kg

DRUGS (1)
  1. ALEVE [Suspect]
     Indication: OROPHARYNGEAL PAIN
     Dosage: TOTAL DAILY DOSE: 880 MG  UNIT DOSE: 220 MG
     Dates: start: 20081024

REACTIONS (1)
  - BLOOD URINE PRESENT [None]
